FAERS Safety Report 7642845-0 (Version None)
Quarter: 2011Q3

REPORT INFORMATION
  Report Type: 
  Country: None (occurrence: None)
  Receive Date: 20110728
  Receipt Date: 20110714
  Transmission Date: 20111222
  Serious: Yes (Other)
  Sender: FDA-Public Use
  Company Number: US-BAYER-2011-062259

PATIENT
  Age: 77 Year
  Sex: Female
  Weight: 77 kg

DRUGS (9)
  1. LUMIGAN [Suspect]
     Indication: GLAUCOMA
     Dosage: 1 GTT, UNK
     Route: 047
     Dates: start: 20110301, end: 20110626
  2. ASPIRIN [Suspect]
     Indication: CARDIAC DISORDER
     Dosage: UNK
     Dates: start: 20110501, end: 20110501
  3. XALATAN [Suspect]
     Indication: GLAUCOMA
  4. SYNTHROID [Concomitant]
     Indication: HYPERTHYROIDISM
     Dosage: 50 ?G, QD
  5. ATACAND [Concomitant]
     Dosage: UNK
  6. SIMVASTATIN [Concomitant]
     Indication: BLOOD CHOLESTEROL INCREASED
     Dosage: 10 MG, QD
  7. XALATAN [Suspect]
     Indication: CATARACT
  8. NADOLOL [Concomitant]
     Indication: HYPERTENSION
     Dosage: 40 MG, BID
  9. XALATAN [Suspect]
     Indication: ABNORMAL SENSATION IN EYE
     Dosage: ONE DROP, QD, IN EACH EYE
     Route: 047
     Dates: start: 20030101, end: 20110501

REACTIONS (4)
  - VISUAL IMPAIRMENT [None]
  - EYE IRRITATION [None]
  - HAEMORRHAGE [None]
  - EYE DISORDER [None]
